FAERS Safety Report 5125562-0 (Version None)
Quarter: 2006Q4

REPORT INFORMATION
  Report Type: 
  Country: None (occurrence: None)
  Receive Date: 20061006
  Receipt Date: 20061002
  Transmission Date: 20070319
  Serious: Yes (Other)
  Sender: FDA-Public Use
  Company Number: HQWYE038515APR05

PATIENT
  Age: 57 Year
  Sex: Female
  Weight: 49.03 kg

DRUGS (4)
  1. PREMPRO [Suspect]
     Indication: HORMONE REPLACEMENT THERAPY
     Dosage: ORAL
     Route: 048
     Dates: start: 19930101, end: 20030909
  2. MEDROXYPROGESTERONE [Suspect]
  3. PREMARIN [Suspect]
     Indication: HORMONE REPLACEMENT THERAPY
     Dosage: ORAL
     Route: 048
     Dates: start: 19930101, end: 20030101
  4. PROVERA [Suspect]

REACTIONS (21)
  - ABDOMINAL DISTENSION [None]
  - AMENORRHOEA [None]
  - BREAST CANCER [None]
  - BREAST CANCER METASTATIC [None]
  - DEPRESSION [None]
  - DRUG ADMINISTRATION ERROR [None]
  - DRUG INEFFECTIVE [None]
  - FLUID RETENTION [None]
  - HAIR GROWTH ABNORMAL [None]
  - HOT FLUSH [None]
  - MENSTRUATION IRREGULAR [None]
  - METASTASES TO LYMPH NODES [None]
  - METRORRHAGIA [None]
  - MOOD SWINGS [None]
  - MUSCLE SPASMS [None]
  - OESTROGEN RECEPTOR ASSAY POSITIVE [None]
  - PROGESTERONE RECEPTOR ASSAY POSITIVE [None]
  - SMOKER [None]
  - SUICIDAL IDEATION [None]
  - WEIGHT INCREASED [None]
  - WITHDRAWAL BLEED [None]
